FAERS Safety Report 20526680 (Version 2)
Quarter: 2022Q2

REPORT INFORMATION
  Report Type: Spontaneous
  Country: IN (occurrence: IN)
  Receive Date: 20220228
  Receipt Date: 20220525
  Transmission Date: 20220721
  Serious: Yes (Hospitalization, Other)
  Sender: FDA-Public Use
  Company Number: IN-PFIZER INC-202200285005

PATIENT
  Age: 56 Year
  Sex: Female
  Weight: 61 kg

DRUGS (1)
  1. PALBOCICLIB [Suspect]
     Active Substance: PALBOCICLIB
     Dosage: 125 MG, 1X/DAY
     Route: 048
     Dates: start: 20210924

REACTIONS (8)
  - Cerebral infarction [Unknown]
  - Peripheral artery thrombosis [Unknown]
  - Haemoglobin abnormal [Unknown]
  - Skin discolouration [Unknown]
  - Arm amputation [Unknown]
  - Platelet count abnormal [Unknown]
  - Cough [Unknown]
  - Neoplasm progression [Unknown]

NARRATIVE: CASE EVENT DATE: 20211114
